FAERS Safety Report 9743279 (Version 3)
Quarter: 2015Q3

REPORT INFORMATION
  Report Type: Spontaneous
  Country: US (occurrence: US)
  Receive Date: 20131210
  Receipt Date: 20150804
  Transmission Date: 20151125
  Serious: No
  Sender: FDA-Public Use
  Company Number: US-GILEAD-2009-0025013

PATIENT
  Age: 64 Year
  Sex: Female

DRUGS (21)
  1. LISINOPRIL. [Concomitant]
     Active Substance: LISINOPRIL
  2. RITALIN [Concomitant]
     Active Substance: METHYLPHENIDATE HYDROCHLORIDE
  3. SKELAXIN [Concomitant]
     Active Substance: METAXALONE
  4. PHENERGAN [Concomitant]
     Active Substance: PROMETHAZINE HYDROCHLORIDE
  5. REVATIO [Concomitant]
     Active Substance: SILDENAFIL CITRATE
  6. FROVA [Concomitant]
     Active Substance: FROVATRIPTAN SUCCINATE
  7. FLONASE [Concomitant]
     Active Substance: FLUTICASONE PROPIONATE
  8. METFORMIN HCL [Concomitant]
     Active Substance: METFORMIN HYDROCHLORIDE
  9. COLCHICINE. [Concomitant]
     Active Substance: COLCHICINE
  10. BUSPIRONE HCL [Concomitant]
     Active Substance: BUSPIRONE HYDROCHLORIDE
  11. LORTAB [Concomitant]
     Active Substance: ACETAMINOPHEN\HYDROCODONE BITARTRATE
  12. LEXAPRO [Concomitant]
     Active Substance: ESCITALOPRAM OXALATE
  13. PROTONIX [Concomitant]
     Active Substance: PANTOPRAZOLE SODIUM
  14. COREG [Concomitant]
     Active Substance: CARVEDILOL
  15. COGENTIN [Concomitant]
     Active Substance: BENZTROPINE MESYLATE
  16. LETAIRIS [Suspect]
     Active Substance: AMBRISENTAN
     Indication: PULMONARY ARTERIAL HYPERTENSION
     Route: 048
     Dates: start: 20091009
  17. TOPAMAX [Concomitant]
     Active Substance: TOPIRAMATE
  18. TRAZODONE [Concomitant]
     Active Substance: TRAZODONE HYDROCHLORIDE
  19. CELEBREX [Concomitant]
     Active Substance: CELECOXIB
  20. SEROQUEL [Concomitant]
     Active Substance: QUETIAPINE FUMARATE
  21. FE-TINIC [Concomitant]
     Active Substance: VITAMINS

REACTIONS (2)
  - Pain in extremity [Unknown]
  - Headache [Unknown]
